FAERS Safety Report 11082216 (Version 1)
Quarter: 2015Q2

REPORT INFORMATION
  Report Type: Spontaneous
  Country: IT (occurrence: IT)
  Receive Date: 20150501
  Receipt Date: 20150501
  Transmission Date: 20150821
  Serious: Yes (Hospitalization)
  Sender: FDA-Public Use
  Company Number: IT-TEVA-539301ISR

PATIENT
  Age: 44 Year
  Sex: Male

DRUGS (2)
  1. AMOXICILLIN + CLAVULANIC ACID [Suspect]
     Active Substance: AMOXICILLIN\CLAVULANIC ACID
     Indication: PHARYNGITIS
     Dosage: 2 G DAILY
     Route: 048
     Dates: start: 20150103, end: 20150110
  2. IBUPROFEN. [Suspect]
     Active Substance: IBUPROFEN
     Indication: PHARYNGITIS
     Dosage: 1200 MG DAILY
     Route: 048
     Dates: start: 20150103, end: 20150110

REACTIONS (2)
  - Myalgia [Unknown]
  - Cholestasis [Unknown]

NARRATIVE: CASE EVENT DATE: 20150110
